FAERS Safety Report 5300403-7 (Version None)
Quarter: 2007Q2

REPORT INFORMATION
  Report Type: 
  Country: None (occurrence: None)
  Receive Date: 20070413
  Receipt Date: 20070413
  Transmission Date: 20071010
  Serious: Yes (Other)
  Sender: FDA-Public Use
  Company Number: None

PATIENT
  Sex: Male
  Weight: 63.5036 kg

DRUGS (2)
  1. SPORANOX [Suspect]
     Indication: FUNGAL INFECTION
     Dosage: 100 MG 2X
     Dates: start: 20020523
  2. CLOBEVATE [Suspect]

REACTIONS (1)
  - B-CELL LYMPHOMA [None]
